FAERS Safety Report 5463827-3 (Version None)
Quarter: 2007Q3

REPORT INFORMATION
  Report Type: 
  Country: None (occurrence: None)
  Receive Date: 20070919
  Receipt Date: 20070904
  Transmission Date: 20080115
  Serious: Yes (Death, Hospitalization, Other)
  Sender: FDA-Public Use
  Company Number: 2007S1001132

PATIENT
  Age: 46 Year
  Sex: Female

DRUGS (2)
  1. PHENYTOIN SODIUM [Suspect]
     Dosage: ORAL
     Route: 048
     Dates: start: 20041101, end: 20050114
  2. DILANTIN [Suspect]
     Dosage: ORAL
     Route: 048
     Dates: start: 20041101, end: 20050114

REACTIONS (3)
  - HYPERSENSITIVITY [None]
  - STEVENS-JOHNSON SYNDROME [None]
  - TOXIC EPIDERMAL NECROLYSIS [None]
